FAERS Safety Report 9339640 (Version 1)
Quarter: 2013Q2

REPORT INFORMATION
  Report Type: Spontaneous
  Country: IT (occurrence: IT)
  Receive Date: 20130610
  Receipt Date: 20130610
  Transmission Date: 20140414
  Serious: Yes (Other)
  Sender: FDA-Public Use
  Company Number: PHHY2013IT048679

PATIENT
  Sex: Female

DRUGS (4)
  1. CARBAMAZEPINE [Suspect]
     Indication: CONVULSION
     Dosage: 800 MG, UNK
  2. CARBAMAZEPINE [Suspect]
     Dosage: 600 MG, UNK
  3. LAMOTRIGINE [Suspect]
     Indication: CONVULSION
     Dosage: 300 MG, UNK
  4. FINASTERIDE [Suspect]
     Indication: HIRSUTISM
     Dosage: 5 MG, UNK

REACTIONS (4)
  - Fall [Unknown]
  - Temporal lobe epilepsy [Recovered/Resolved]
  - Convulsion [Recovered/Resolved]
  - Drug ineffective [Recovered/Resolved]
